FAERS Safety Report 8475426-X (Version None)
Quarter: 2012Q2

REPORT INFORMATION
  Report Type: 
  Country: None (occurrence: None)
  Receive Date: 20120628
  Receipt Date: 20120619
  Transmission Date: 20120825
  Serious: Yes (Hospitalization)
  Sender: FDA-Public Use
  Company Number: US-JNJFOC-20110306099

PATIENT
  Age: 65 Year
  Sex: Female
  Weight: 65.32 kg

DRUGS (5)
  1. TIMOLOL MALEATE [Concomitant]
     Indication: GLAUCOMA
     Dosage: (5%) ONE EACH EYE
     Route: 047
     Dates: start: 19970308
  2. BENADRYL [Suspect]
     Indication: BLISTER
     Dosage: ^JUST A LITTLE BIT^
     Route: 061
     Dates: start: 20110208, end: 20110308
  3. CALCIUM WITH VITAMIN D [Concomitant]
     Indication: PRODUCT USED FOR UNKNOWN INDICATION
     Route: 065
  4. ASPIRIN [Concomitant]
     Indication: BLOOD DISORDER
     Route: 065
     Dates: start: 20110221
  5. SYNTHROID [Concomitant]
     Indication: THYROID DISORDER
     Route: 065
     Dates: start: 20090308

REACTIONS (6)
  - INCORRECT DRUG ADMINISTRATION DURATION [None]
  - APPLICATION SITE INFECTION [None]
  - APPLICATION SITE ERYTHEMA [None]
  - APPLICATION SITE PAIN [None]
  - PYREXIA [None]
  - EXPIRED DRUG ADMINISTERED [None]
